FAERS Safety Report 19396588 (Version 1)
Quarter: 2021Q2

REPORT INFORMATION
  Report Type: Spontaneous
  Country: IT (occurrence: IT)
  Receive Date: 20210610
  Receipt Date: 20210610
  Transmission Date: 20210717
  Serious: Yes (Hospitalization, Other)
  Sender: FDA-Public Use
  Company Number: IT-VISTAPHARM, INC.-VER202106-001420

PATIENT
  Age: 55 Year
  Sex: Female

DRUGS (8)
  1. CARBAMAZEPINE. [Concomitant]
     Active Substance: CARBAMAZEPINE
     Indication: PAIN
     Dosage: UNKNOWN
  2. PREGABALIN. [Concomitant]
     Active Substance: PREGABALIN
     Indication: PAIN
     Dosage: UNKNOWN
  3. OXYCODONE/NALOXONE [Concomitant]
     Active Substance: NALOXONE HYDROCHLORIDE\OXYCODONE HYDROCHLORIDE
     Indication: PAIN
     Dosage: UNKNOWN
  4. ADRENALINE [Concomitant]
     Active Substance: EPINEPHRINE
     Indication: PERIPHERAL NERVE NEUROSTIMULATION
     Dosage: 0.2 MG/KG/MIN
  5. HYDROCODONE AND ACETAMINOPHEN [Suspect]
     Active Substance: ACETAMINOPHEN\HYDROCODONE
     Indication: PAIN
     Dosage: UNKNOWN
  6. TRAMADOL. [Concomitant]
     Active Substance: TRAMADOL
     Indication: PAIN
     Dosage: UNKNOWN
  7. ACETAMINOPHEN AND CODEINE [Concomitant]
     Active Substance: ACETAMINOPHEN\CODEINE PHOSPHATE
     Indication: PAIN
     Dosage: UNKNOWN
  8. NORADRENALINE [Concomitant]
     Active Substance: NOREPINEPHRINE
     Indication: PERIPHERAL NERVE NEUROSTIMULATION
     Dosage: 0.2 MCG/KG/MIN

REACTIONS (11)
  - Hypokalaemia [Recovered/Resolved]
  - Overdose [Recovered/Resolved]
  - Hypothermia [Recovered/Resolved]
  - Hypotension [Recovered/Resolved]
  - Lactic acidosis [Recovered/Resolved]
  - Atrial fibrillation [Recovered/Resolved]
  - Bradypnoea [Recovered/Resolved]
  - Drug-induced liver injury [Recovered/Resolved]
  - Coma [Recovered/Resolved]
  - Mydriasis [Recovered/Resolved]
  - Bradycardia [Recovered/Resolved]
